FAERS Safety Report 25545683 (Version 1)
Quarter: 2025Q3

REPORT INFORMATION
  Report Type: Spontaneous
  Country: US (occurrence: US)
  Receive Date: 20250712
  Receipt Date: 20250712
  Transmission Date: 20251021
  Serious: No
  Sender: COSETTE PHARMACEUTICALS INC
  Company Number: US-COSETTE-CP2025US000620

PATIENT
  Age: 53 Year
  Sex: Female

DRUGS (3)
  1. VYLEESI [Suspect]
     Active Substance: BREMELANOTIDE ACETATE
     Indication: Sexual dysfunction
     Route: 058
     Dates: start: 20250603
  2. VYLEESI [Suspect]
     Active Substance: BREMELANOTIDE ACETATE
     Route: 058
  3. VYLEESI [Suspect]
     Active Substance: BREMELANOTIDE ACETATE
     Route: 058
     Dates: end: 20250627

REACTIONS (3)
  - Illness [Recovered/Resolved]
  - Headache [Recovered/Resolved]
  - Drug ineffective [Unknown]

NARRATIVE: CASE EVENT DATE: 20250601
